FAERS Safety Report 8927612 (Version 2)
Quarter: 2012Q4

REPORT INFORMATION
  Report Type: 
  Country: GB (occurrence: GB)
  Receive Date: 20121127
  Receipt Date: 20121214
  Transmission Date: 20130627
  Serious: Yes (Hospitalization)
  Sender: FDA-Public Use
  Company Number: PHFR2012GB006094

PATIENT
  Sex: Female

DRUGS (2)
  1. CLOZARIL [Suspect]
     Indication: SCHIZOPHRENIA
     Dosage: UNK
     Route: 048
     Dates: start: 20031007
  2. CLOZARIL [Suspect]
     Dosage: UNK

REACTIONS (6)
  - Gastrointestinal hypomotility [Unknown]
  - Abdominal pain [Unknown]
  - Pneumonia [Unknown]
  - Vomiting [Unknown]
  - Neutrophil count increased [Unknown]
  - Platelet count increased [Unknown]
